FAERS Safety Report 9527210 (Version 2)
Quarter: 2013Q3

REPORT INFORMATION
  Report Type: Spontaneous
  Country: VE (occurrence: VE)
  Receive Date: 20130917
  Receipt Date: 20130928
  Transmission Date: 20140515
  Serious: Yes (Death, Hospitalization)
  Sender: FDA-Public Use
  Company Number: VE-ROCHE-1275251

PATIENT
  Age: 27 Year
  Sex: Female

DRUGS (3)
  1. BEVACIZUMAB [Suspect]
     Indication: CERVIX CARCINOMA
     Route: 042
  2. TOPOTECAN [Concomitant]
     Indication: CERVIX CARCINOMA
     Route: 065
  3. PACLITAXEL [Concomitant]
     Indication: CERVIX CARCINOMA
     Route: 065

REACTIONS (3)
  - Female genital tract fistula [Fatal]
  - Vaginal haemorrhage [Fatal]
  - Hypovolaemic shock [Fatal]
